FAERS Safety Report 4816741-8 (Version None)
Quarter: 2005Q4

REPORT INFORMATION
  Report Type: 
  Country: None (occurrence: None)
  Receive Date: 20051101
  Receipt Date: 20050323
  Transmission Date: 20060501
  Serious: No
  Sender: FDA-Public Use
  Company Number: CEL-2005-00263-R

PATIENT
  Sex: Female

DRUGS (7)
  1. AMOXICILLIN [Suspect]
     Indication: SINUSITIS
     Route: 065
     Dates: start: 20050206, end: 20050215
  2. DELSYM [Suspect]
     Indication: COUGH
     Dosage: 10ML UNKNOWN
     Route: 048
     Dates: start: 20050215, end: 20050217
  3. VITAMINS [Concomitant]
     Route: 048
  4. ASPIRIN [Concomitant]
     Route: 048
  5. ANTIHYPERTENSIVES [Concomitant]
     Route: 048
  6. DIURETIC [Concomitant]
     Route: 048
  7. CALCIUM GLUCONATE [Concomitant]
     Indication: MINERAL DEFICIENCY
     Route: 048

REACTIONS (1)
  - DIARRHOEA [None]
